FAERS Safety Report 5035155-1 (Version None)
Quarter: 2006Q2

REPORT INFORMATION
  Report Type: 
  Country: None (occurrence: None)
  Receive Date: 20060627
  Receipt Date: 20060621
  Transmission Date: 20061013
  Serious: Yes (Life-Threatening)
  Sender: FDA-Public Use
  Company Number: PHEH2006US08099

PATIENT
  Sex: Female
  Weight: 97.505 kg

DRUGS (1)
  1. ENABLEX [Suspect]
     Indication: URINARY INCONTINENCE
     Dosage: 7.5 MG, QD
     Dates: start: 20060510, end: 20060517

REACTIONS (4)
  - CHEST DISCOMFORT [None]
  - PRURITUS [None]
  - SWOLLEN TONGUE [None]
  - THROAT TIGHTNESS [None]
